FAERS Safety Report 11424850 (Version 1)
Quarter: 2015Q3

REPORT INFORMATION
  Report Type: Spontaneous
  Country: US (occurrence: US)
  Receive Date: 20150821
  Receipt Date: 20150821
  Transmission Date: 20151125
  Serious: No
  Sender: FDA-Public Use
  Company Number: US-ELI_LILLY_AND_COMPANY-US201212005714

PATIENT
  Age: 77 Year
  Sex: Male

DRUGS (1)
  1. HUMULIN 70/30 [Suspect]
     Active Substance: INSULIN HUMAN
     Indication: TYPE 1 DIABETES MELLITUS
     Dosage: UNK, UNKNOWN

REACTIONS (4)
  - Incorrect product storage [Recovered/Resolved]
  - Blood glucose increased [Unknown]
  - Incorrect product storage [Not Recovered/Not Resolved]
  - Wrong technique in product usage process [Unknown]
